FAERS Safety Report 25534562 (Version 1)
Quarter: 2025Q3

REPORT INFORMATION
  Report Type: Spontaneous
  Country: CN (occurrence: CN)
  Receive Date: 20250709
  Receipt Date: 20250709
  Transmission Date: 20251020
  Serious: Yes (Hospitalization)
  Sender: BRACCO
  Company Number: CN-BRACCO-2025CN04394

PATIENT
  Age: 66 Year
  Sex: Male

DRUGS (1)
  1. IOMEPROL [Suspect]
     Active Substance: IOMEPROL
     Indication: Angiogram
     Route: 041
     Dates: start: 20250619, end: 20250619

REACTIONS (4)
  - Rash [Unknown]
  - Hypertension [Unknown]
  - Dizziness [Unknown]
  - Hypoacusis [Unknown]

NARRATIVE: CASE EVENT DATE: 20250619
